FAERS Safety Report 20022779 (Version 1)
Quarter: 2021Q4

REPORT INFORMATION
  Report Type: Spontaneous
  Country: US (occurrence: US)
  Receive Date: 20211102
  Receipt Date: 20211102
  Transmission Date: 20220303
  Serious: Yes (Life-Threatening, Hospitalization, Other)
  Sender: FDA-Public Use
  Company Number: US-MLMSERVICE-20211014-3166632-1

PATIENT
  Age: 78 Year
  Sex: Female

DRUGS (2)
  1. FLUOROURACIL [Suspect]
     Active Substance: FLUOROURACIL
     Indication: Cholangiocarcinoma
  2. LEUCOVORIN [Concomitant]
     Active Substance: LEUCOVORIN
     Indication: Cholangiocarcinoma

REACTIONS (4)
  - Anaemia [Recovering/Resolving]
  - Pulmonary alveolar haemorrhage [Recovering/Resolving]
  - Pulmonary toxicity [Recovering/Resolving]
  - Off label use [Unknown]
